FAERS Safety Report 6206602-4 (Version None)
Quarter: 2009Q2

REPORT INFORMATION
  Report Type: 
  Country: None (occurrence: None)
  Receive Date: 20090527
  Receipt Date: 20090527
  Transmission Date: 20091009
  Serious: Yes (Other)
  Sender: FDA-Public Use
  Company Number: None

PATIENT
  Sex: Female
  Weight: 67.6 kg

DRUGS (5)
  1. VINORELBINE [Suspect]
     Indication: BREAST CANCER METASTATIC
     Dosage: 25MG/M2 WEEKLY X 3 WEEKS/M IV
     Route: 042
     Dates: start: 20090317, end: 20090518
  2. SORAFENIB 200MG BAYER [Suspect]
     Indication: BREAST CANCER METASTATIC
     Dosage: 200MG DAILY PO
     Route: 048
     Dates: start: 20090317, end: 20090518
  3. ATENOLOL [Concomitant]
  4. CARTIA XT [Concomitant]
  5. COUMADIN [Concomitant]

REACTIONS (4)
  - ACTIVATED PARTIAL THROMBOPLASTIN TIME PROLONGED [None]
  - DRUG DISPENSING ERROR [None]
  - INCORRECT DOSE ADMINISTERED [None]
  - PROTHROMBIN TIME PROLONGED [None]
